FAERS Safety Report 10608651 (Version 8)
Quarter: 2015Q3

REPORT INFORMATION
  Report Type: Spontaneous
  Country: US (occurrence: US)
  Receive Date: 20141125
  Receipt Date: 20150804
  Transmission Date: 20151125
  Serious: Yes (Other)
  Sender: FDA-Public Use
  Company Number: US-PFIZER INC-2014324106

PATIENT
  Age: 33 Year
  Sex: Female
  Weight: 83 kg

DRUGS (13)
  1. MELOXICAM. [Concomitant]
     Active Substance: MELOXICAM
     Dosage: UNK
     Dates: start: 20141217
  2. DULOXETINE. [Concomitant]
     Active Substance: DULOXETINE
     Dosage: UNK
     Dates: start: 20150113
  3. OMEPRAZOLE. [Concomitant]
     Active Substance: OMEPRAZOLE
     Dosage: 20 MG, UNK
     Dates: start: 20140721
  4. MONO LINYAH [Concomitant]
     Dosage: ETHINYLESTRADIOL 35MCG/NORGESTIMATE 0.25MG
  5. CELEBREX [Concomitant]
     Active Substance: CELECOXIB
     Dosage: UNK
  6. LYRICA [Suspect]
     Active Substance: PREGABALIN
     Indication: FIBROMYALGIA
     Dosage: 450 MG, 1X/DAY
     Route: 048
     Dates: start: 2014, end: 201506
  7. LYRICA [Suspect]
     Active Substance: PREGABALIN
     Dosage: 150 MG, 3X/DAY
     Route: 048
     Dates: start: 20140417
  8. CLONAZEPAM. [Concomitant]
     Active Substance: CLONAZEPAM
     Dosage: 0.5 MG, UNK
     Dates: start: 201504
  9. ADDERALL [Concomitant]
     Active Substance: AMPHETAMINE ASPARTATE\AMPHETAMINE SULFATE\DEXTROAMPHETAMINE SACCHARATE\DEXTROAMPHETAMINE SULFATE
     Indication: MEMORY IMPAIRMENT
     Dosage: UNK
  10. AMITRIPTYLINE [Concomitant]
     Active Substance: AMITRIPTYLINE
     Dosage: UNK
  11. LISINOPRIL. [Concomitant]
     Active Substance: LISINOPRIL
     Dosage: 40 MG, UNK
     Dates: start: 201203
  12. SOMA [Concomitant]
     Active Substance: CARISOPRODOL
     Dosage: UNK
  13. PERCOCET [Concomitant]
     Active Substance: ACETAMINOPHEN\OXYCODONE HYDROCHLORIDE
     Dosage: 10 MG, 3X/DAY

REACTIONS (15)
  - Pain [Not Recovered/Not Resolved]
  - Mobility decreased [Unknown]
  - Panic attack [Unknown]
  - Musculoskeletal pain [Unknown]
  - Shock [Unknown]
  - Pain in extremity [Unknown]
  - Drug dependence [Unknown]
  - Anxiety [Not Recovered/Not Resolved]
  - Back pain [Unknown]
  - Drug withdrawal syndrome [Recovered/Resolved]
  - Feeling abnormal [Recovered/Resolved]
  - Abdominal distension [Unknown]
  - Migraine [Unknown]
  - Weight increased [Unknown]
  - Hypoaesthesia [Unknown]
